FAERS Safety Report 8895767 (Version 1)
Quarter: 2012Q4

REPORT INFORMATION
  Report Type: 
  Country: US (occurrence: US)
  Receive Date: 20121108
  Receipt Date: 20121108
  Transmission Date: 20130627
  Serious: Yes (Other)
  Sender: FDA-Public Use
  Company Number: US-JNJFOC-20121102192

PATIENT
  Age: 79 Year
  Sex: Female
  Weight: 58.97 kg

DRUGS (2)
  1. IMODIUM A-D [Suspect]
     Route: 048
  2. IMODIUM A-D [Suspect]
     Indication: DIARRHOEA
     Route: 048
     Dates: start: 20120902

REACTIONS (3)
  - Faeces discoloured [Unknown]
  - Mucous stools [Unknown]
  - Mental disorder [Unknown]
